FAERS Safety Report 10218812 (Version 3)
Quarter: 2014Q2

REPORT INFORMATION
  Report Type: Report from Study
  Country: US (occurrence: US)
  Receive Date: 20140605
  Receipt Date: 20140617
  Transmission Date: 20141212
  Serious: Yes (Hospitalization)
  Sender: FDA-Public Use
  Company Number: US-PFIZER INC-2014149155

PATIENT
  Age: 84 Year
  Sex: Female
  Weight: 93 kg

DRUGS (52)
  1. BLINDED CELECOXIB [Suspect]
     Indication: OSTEOARTHRITIS
     Dosage: 3X/DAY
     Route: 048
     Dates: start: 20101001, end: 20120517
  2. BLINDED IBUPROFEN [Suspect]
     Indication: OSTEOARTHRITIS
     Dosage: 3X/DAY
     Route: 048
     Dates: start: 20101001, end: 20120517
  3. BLINDED IBUPROFEN [Suspect]
     Indication: OSTEOARTHRITIS
     Dosage: 3X/DAY
     Route: 048
     Dates: start: 20101001, end: 20120517
  4. BLINDED IBUPROFEN [Suspect]
     Indication: OSTEOARTHRITIS
     Dosage: 3X/DAY
     Route: 048
     Dates: start: 20101001, end: 20120517
  5. BLINDED NAPROXEN [Suspect]
     Indication: OSTEOARTHRITIS
     Dosage: 3X/DAY
     Route: 048
     Dates: start: 20101001, end: 20120517
  6. BLINDED NAPROXEN [Suspect]
     Indication: OSTEOARTHRITIS
     Dosage: 3X/DAY
     Route: 048
     Dates: start: 20101001, end: 20120517
  7. BLINDED NAPROXEN [Suspect]
     Indication: OSTEOARTHRITIS
     Dosage: 3X/DAY
     Route: 048
     Dates: start: 20101001, end: 20120517
  8. BLINDED PLACEBO [Suspect]
     Indication: OSTEOARTHRITIS
     Dosage: 3X/DAY
     Route: 048
     Dates: start: 20101001, end: 20120517
  9. BLINDED CELECOXIB [Suspect]
     Indication: RHEUMATOID ARTHRITIS
  10. BLINDED IBUPROFEN [Suspect]
     Indication: RHEUMATOID ARTHRITIS
  11. BLINDED IBUPROFEN [Suspect]
     Indication: RHEUMATOID ARTHRITIS
  12. BLINDED IBUPROFEN [Suspect]
     Indication: RHEUMATOID ARTHRITIS
  13. BLINDED NAPROXEN [Suspect]
     Indication: RHEUMATOID ARTHRITIS
  14. BLINDED NAPROXEN [Suspect]
     Indication: RHEUMATOID ARTHRITIS
  15. BLINDED NAPROXEN [Suspect]
     Indication: RHEUMATOID ARTHRITIS
  16. BLINDED PLACEBO [Suspect]
     Indication: RHEUMATOID ARTHRITIS
  17. CLINDAMYCIN HCL [Suspect]
     Indication: CELLULITIS
     Dosage: 600 MG, Q6 HOURS
     Route: 042
     Dates: start: 20120825, end: 20120901
  18. NEXIUM [Concomitant]
     Indication: PROPHYLAXIS
     Dosage: 20 MG, 1X/DAY
     Route: 048
     Dates: start: 20101001, end: 20120612
  19. LEVOTHYROXINE [Concomitant]
     Indication: HYPOTHYROIDISM
     Dosage: 0.05 MG, 1X/DAY
     Route: 048
     Dates: start: 2000
  20. METOPROLOL SUCCINATE [Concomitant]
     Indication: HYPERTENSION
     Dosage: 50 MG, 1X/DAY
     Route: 048
     Dates: start: 2000
  21. ACETYLSALICYLIC ACID [Concomitant]
     Indication: CARDIOVASCULAR EVENT PROPHYLAXIS
     Dosage: 325 MG, 1X/DAY
     Route: 048
     Dates: start: 1995
  22. FISH OIL [Concomitant]
     Indication: SUPPLEMENTATION THERAPY
     Dosage: 1 CAP, 1X/DAY
     Route: 048
     Dates: start: 1990
  23. CALCIUM PLUS VITAMIN D [Concomitant]
     Indication: SUPPLEMENTATION THERAPY
     Dosage: 1 TAB, 1X/DAY
     Route: 048
     Dates: start: 1990
  24. MELATONIN [Concomitant]
     Indication: INSOMNIA
     Dosage: 5 MG, 1X/DAY
     Route: 048
     Dates: start: 2008
  25. VENTOLIN [Concomitant]
     Indication: CHRONIC OBSTRUCTIVE PULMONARY DISEASE
     Dosage: INHALATION FORMULATION; 2 PUFFS, QD
     Route: 055
     Dates: start: 201003
  26. OXYGEN [Concomitant]
     Indication: SLEEP APNOEA SYNDROME
     Dosage: ROUTE: INHALED
     Route: 055
     Dates: start: 2008
  27. PREMARIN [Concomitant]
     Indication: HORMONE REPLACEMENT THERAPY
     Dosage: 0.625 MG, WEEKLY
     Route: 048
     Dates: start: 201201
  28. TRAMADOL [Concomitant]
     Indication: OSTEOARTHRITIS
     Dosage: 50 MG, AS NEEDED
     Route: 048
     Dates: start: 20110621
  29. TRAMADOL [Concomitant]
     Indication: PAIN IN EXTREMITY
  30. NIACIN [Concomitant]
     Indication: DYSLIPIDAEMIA
     Dosage: 500 MG, 1X/DAY
     Route: 048
     Dates: start: 201203
  31. SPIRIVA [Concomitant]
     Indication: CHRONIC OBSTRUCTIVE PULMONARY DISEASE
     Dosage: 18 MCG, 1X/DAY
     Route: 055
     Dates: start: 201110
  32. IRON [Concomitant]
     Indication: SUPPLEMENTATION THERAPY
     Dosage: UNK
     Route: 048
     Dates: start: 20120310
  33. NAPROXEN [Concomitant]
     Indication: OSTEOARTHRITIS
     Dosage: 220 MG, AS NEEDED
     Route: 048
     Dates: start: 20120628
  34. FUROSEMIDE [Concomitant]
     Indication: HYPERTENSION
     Dosage: 20 MG, 1X/DAY
     Route: 048
     Dates: start: 20120406
  35. FUROSEMIDE [Concomitant]
     Indication: OEDEMA PERIPHERAL
  36. SIMVASTATIN [Concomitant]
     Indication: DYSLIPIDAEMIA
     Dosage: 20 MG, 1X/DAY
     Route: 048
     Dates: start: 20120803
  37. ZOSYN [Concomitant]
     Indication: CELLULITIS
     Dosage: 3.375 G, Q6 HOURS
     Route: 042
     Dates: start: 20120824, end: 20120828
  38. PREDNISONE [Concomitant]
     Indication: CELLULITIS
     Dosage: UNK
     Route: 048
     Dates: start: 20120830
  39. LISINOPRIL [Concomitant]
     Indication: HYPERTENSION
     Dosage: 20 MG, 1X/DAY
     Route: 048
     Dates: end: 20120830
  40. LISINOPRIL [Concomitant]
     Indication: HYPERTENSION
  41. LACTOBACILLUS ACIDOPHILUS [Concomitant]
     Indication: PROPHYLAXIS
     Dosage: 1 DF (CAP), 2X/DAY
     Route: 048
     Dates: start: 20120824, end: 20120830
  42. ZOFRAN [Concomitant]
     Indication: PROPHYLAXIS OF NAUSEA AND VOMITING
     Dosage: 4 MG, AS NEEDED
     Route: 042
     Dates: start: 20120824, end: 20120830
  43. NORCO [Concomitant]
     Indication: OSTEOARTHRITIS
     Dosage: 5-325: 1 DF (TAB), AS NEEDED
     Route: 048
     Dates: start: 20120824, end: 20120830
  44. NORCO [Concomitant]
     Indication: PAIN
  45. TEMAZEPAM [Concomitant]
     Indication: INSOMNIA
     Dosage: 15 MG, HS
     Route: 048
     Dates: start: 20120824, end: 20120827
  46. LOVENOX [Concomitant]
     Indication: PROPHYLAXIS
     Dosage: 40 MG, 1X/DAY
     Route: 058
     Dates: start: 20120824, end: 20120830
  47. CLONIDINE [Concomitant]
     Indication: HYPERTENSION
     Dosage: 0.1 MG, ONCE
     Route: 048
     Dates: start: 20120827, end: 20120827
  48. AMBIEN [Concomitant]
     Indication: INSOMNIA
     Dosage: 5 MG, HS
     Route: 048
     Dates: start: 20120827, end: 20120829
  49. ALBUTEROL [Concomitant]
     Indication: CHRONIC OBSTRUCTIVE PULMONARY DISEASE
     Dosage: NEBULES 0.083%, 3 ML, AS NEEDED; FORMULATION: INHALATION SOLUTION; ROUTE: INHALED
     Route: 055
     Dates: start: 20120824, end: 20120830
  50. NORMAL SALINE [Concomitant]
     Indication: SUPPORTIVE CARE
     Dosage: 150 ML/HR, CONTINUOUS
     Route: 042
     Dates: start: 20120824, end: 20120825
  51. NORMAL SALINE [Concomitant]
     Indication: ACUTE PRERENAL FAILURE
  52. VANCOMYCIN [Concomitant]
     Indication: CELLULITIS
     Dosage: 1 G, ONCE
     Route: 042
     Dates: start: 20120824, end: 20120824

REACTIONS (1)
  - Drug hypersensitivity [Recovered/Resolved]
